FAERS Safety Report 15134211 (Version 1)
Quarter: 2018Q3

REPORT INFORMATION
  Report Type: Spontaneous
  Country: FR (occurrence: FR)
  Receive Date: 20180712
  Receipt Date: 20180712
  Transmission Date: 20181010
  Serious: Yes (Hospitalization)
  Sender: FDA-Public Use
  Company Number: FR-TEVA-2018-FR-924105

PATIENT
  Age: 60 Year
  Sex: Male
  Weight: 87 kg

DRUGS (4)
  1. PREDNISONE. [Suspect]
     Active Substance: PREDNISONE
     Indication: EAR INFECTION
     Route: 048
     Dates: start: 20180413, end: 20180420
  2. NEO?CODION (CODEINE CAMSILATE) [Suspect]
     Active Substance: CODEINE
     Indication: COUGH
     Route: 048
     Dates: start: 20180405, end: 20180410
  3. OFLOXACINE [Concomitant]
     Active Substance: OFLOXACIN
     Indication: EAR INFECTION
     Route: 001
     Dates: start: 20180413, end: 20180421
  4. ORELOX [Concomitant]
     Active Substance: CEFPODOXIME
     Indication: EAR INFECTION
     Route: 048
     Dates: start: 20180413, end: 20180421

REACTIONS (1)
  - Pancreatitis acute [Recovered/Resolved]

NARRATIVE: CASE EVENT DATE: 20180418
